FAERS Safety Report 8209718-6 (Version None)
Quarter: 2012Q1

REPORT INFORMATION
  Report Type: 
  Country: None (occurrence: None)
  Receive Date: 20120314
  Receipt Date: 20120305
  Transmission Date: 20120608
  Serious: Yes (Hospitalization)
  Sender: FDA-Public Use
  Company Number: FR-ASTRAZENECA-2012SE16619

PATIENT
  Age: 49 Year
  Sex: Female

DRUGS (2)
  1. NEXIUM [Suspect]
     Route: 042
     Dates: start: 20110905, end: 20111129
  2. VICTOZA [Concomitant]
     Dosage: 6 MG/ML
     Route: 051
     Dates: start: 20100501

REACTIONS (1)
  - RENAL FAILURE CHRONIC [None]
